FAERS Safety Report 21751350 (Version 1)
Quarter: 2022Q4

REPORT INFORMATION
  Report Type: Report from Study
  Country: US (occurrence: US)
  Receive Date: 20221220
  Receipt Date: 20221220
  Transmission Date: 20230112
  Serious: Yes (Other)
  Sender: FDA-Public Use
  Company Number: US-002147023-NVSC2022US290131

PATIENT

DRUGS (1)
  1. PROMACTA [Suspect]
     Active Substance: ELTROMBOPAG OLAMINE
     Indication: Immune thrombocytopenia
     Dosage: 50 MG, QD
     Route: 065

REACTIONS (10)
  - Cataract [Unknown]
  - Weight increased [Unknown]
  - Skin disorder [Unknown]
  - Crying [Unknown]
  - Illness [Unknown]
  - Condition aggravated [Unknown]
  - Bone disorder [Unknown]
  - Nausea [Unknown]
  - Alopecia [Unknown]
  - Drug intolerance [Unknown]
